FAERS Safety Report 7200483-8 (Version None)
Quarter: 2010Q4

REPORT INFORMATION
  Report Type: 
  Country: None (occurrence: None)
  Receive Date: 20101228
  Receipt Date: 20101222
  Transmission Date: 20110411
  Serious: Yes (Other)
  Sender: FDA-Public Use
  Company Number: HR-PFIZER INC-2010177239

PATIENT
  Age: 74 Year
  Sex: Male

DRUGS (14)
  1. AZITHROMYCIN [Suspect]
     Indication: PNEUMONIA
     Dosage: UNK
     Dates: start: 20101022, end: 20101001
  2. CORDARONE [Interacting]
     Indication: ATRIAL FIBRILLATION
     Dosage: 200 MG, 2X/DAY
     Route: 048
     Dates: start: 20101020, end: 20101108
  3. NOVOCEF [Interacting]
     Indication: PNEUMONIA
     Dosage: 250 MG, 2X/DAY
     Route: 048
     Dates: start: 20101030, end: 20101108
  4. WARFARIN SODIUM [Interacting]
     Dosage: UNK
     Dates: end: 20101101
  5. AMOXYCILLIN/CLAVULANIC ACID [Interacting]
     Indication: PNEUMONIA
     Dosage: UNK
     Dates: start: 20101022, end: 20101001
  6. CONCOR [Concomitant]
     Indication: HYPERTENSION
     Dosage: 5 MG, 1X/DAY
     Route: 048
     Dates: start: 20010101
  7. NORVASC [Concomitant]
     Indication: HYPERTENSION
     Dosage: 10 MG, 1X/DAY
     Dates: start: 20010101
  8. NOVOMIX [Concomitant]
     Indication: DIABETES MELLITUS
     Dosage: 25 IU, 1X/DAY
     Route: 058
     Dates: start: 20101025
  9. PHYSIOTENS [Concomitant]
     Indication: HYPERTENSION
     Dosage: 0.2 MG, 1X/DAY
     Route: 048
     Dates: start: 20080101
  10. FURSEMID [Concomitant]
     Indication: RENAL FAILURE CHRONIC
     Dosage: 40 MG, 1X/DAY
     Route: 048
     Dates: start: 20070101, end: 20101101
  11. ALOPURINOL ^BELUPO^ [Concomitant]
     Indication: GOUT
     Dosage: 100 MG, 1X/DAY
     Route: 048
     Dates: start: 20080101
  12. ASPIRIN [Concomitant]
     Indication: ATRIAL FIBRILLATION
     Dosage: 100 MG, 1X/DAY
     Dates: start: 20050101, end: 20101101
  13. ATACAND HCT [Concomitant]
     Dosage: 12.5 MG, 1X/DAY
     Route: 048
     Dates: start: 20080101, end: 20101101
  14. CLEXANE [Concomitant]
     Indication: ATRIAL FIBRILLATION
     Dosage: 0.4 ML, 1X/DAY
     Route: 042
     Dates: start: 20101020, end: 20101108

REACTIONS (4)
  - BLOOD CREATININE INCREASED [None]
  - LEUKOPENIA [None]
  - OLIGURIA [None]
  - PROTHROMBIN TIME SHORTENED [None]
